FAERS Safety Report 5702128-2 (Version None)
Quarter: 2008Q2

REPORT INFORMATION
  Report Type: 
  Country: None (occurrence: None)
  Receive Date: 20080411
  Receipt Date: 20080402
  Transmission Date: 20081010
  Serious: Yes (Hospitalization, Disabling, Other)
  Sender: FDA-Public Use
  Company Number: US-ROCHE-467350

PATIENT
  Sex: Male
  Weight: 63.5 kg

DRUGS (4)
  1. ACCUTANE [Suspect]
     Indication: ACNE
     Route: 048
     Dates: start: 19821101, end: 19830515
  2. BENZOYL PEROXIDE [Concomitant]
     Indication: ACNE
     Route: 061
  3. SALICYLIC ACID [Concomitant]
     Indication: ACNE
     Route: 061
  4. KENALOG [Concomitant]
     Dosage: ROUTE REPORTED AS:INJ.

REACTIONS (39)
  - ABDOMINAL WALL MASS [None]
  - ACNE [None]
  - ALOPECIA [None]
  - ANAEMIA [None]
  - ANXIETY [None]
  - ARTHRITIS [None]
  - BLOOD CHOLESTEROL INCREASED [None]
  - BLOOD TRIGLYCERIDES DECREASED [None]
  - CALCULUS URETERIC [None]
  - COLITIS [None]
  - COLITIS ULCERATIVE [None]
  - CONVULSION [None]
  - CROHN'S DISEASE [None]
  - DEAFNESS [None]
  - DEHYDRATION [None]
  - DEPRESSION [None]
  - DIVERTICULITIS [None]
  - DUODENAL ULCER [None]
  - DYSPEPSIA [None]
  - GASTROINTESTINAL MOTILITY DISORDER [None]
  - HAIR TEXTURE ABNORMAL [None]
  - HIATUS HERNIA [None]
  - HYDRONEPHROSIS [None]
  - HYPOKALAEMIA [None]
  - INFLAMMATORY BOWEL DISEASE [None]
  - INTESTINAL HAEMORRHAGE [None]
  - INTESTINAL OBSTRUCTION [None]
  - INTESTINAL PERFORATION [None]
  - IRRITABLE BOWEL SYNDROME [None]
  - MORBID THOUGHTS [None]
  - NEPHROLITHIASIS [None]
  - OESOPHAGITIS [None]
  - PANCREATITIS [None]
  - PERITONITIS [None]
  - PROCTITIS [None]
  - RADICULOPATHY [None]
  - SINUS BRADYCARDIA [None]
  - SKIN CANCER [None]
  - THROMBOCYTOPENIA [None]
